FAERS Safety Report 10044915 (Version 1)
Quarter: 2014Q1

REPORT INFORMATION
  Report Type: Spontaneous
  Country: GB (occurrence: GB)
  Receive Date: 20140328
  Receipt Date: 20140328
  Transmission Date: 20141002
  Serious: Yes (Life-Threatening)
  Sender: FDA-Public Use
  Company Number: GB-GLAXOSMITHKLINE-B0962138A

PATIENT
  Age: 73 Year
  Sex: Male

DRUGS (5)
  1. BECONASE [Suspect]
     Indication: NASAL INFLAMMATION
     Dosage: 2SPR TWICE PER DAY
     Route: 045
     Dates: start: 201308, end: 201312
  2. BECLOMETASONE [Concomitant]
  3. SALBUTAMOL INHALER [Concomitant]
  4. FLECAINIDE [Concomitant]
  5. WARFARIN [Concomitant]

REACTIONS (2)
  - Aphonia [Recovered/Resolved]
  - Dysphonia [Recovered/Resolved]
